FAERS Safety Report 7342934-4 (Version None)
Quarter: 2011Q1

REPORT INFORMATION
  Report Type: 
  Country: None (occurrence: None)
  Receive Date: 20110308
  Receipt Date: 20110308
  Transmission Date: 20110831
  Serious: Yes (Hospitalization)
  Sender: FDA-Public Use
  Company Number: None

PATIENT
  Age: 58 Year
  Sex: Male
  Weight: 61.2356 kg

DRUGS (1)
  1. MOXIFLOXACIN [Suspect]
     Indication: URINARY TRACT INFECTION
     Dosage: 400 MG ONCE IV
     Route: 042
     Dates: start: 20110123, end: 20110123

REACTIONS (3)
  - RASH [None]
  - URTICARIA [None]
  - PRURITUS [None]
